FAERS Safety Report 7809766-1 (Version None)
Quarter: 2011Q4

REPORT INFORMATION
  Report Type: 
  Country: None (occurrence: None)
  Receive Date: 20111012
  Receipt Date: 20111005
  Transmission Date: 20120403
  Serious: Yes (Other)
  Sender: FDA-Public Use
  Company Number: PHHY2011BE87800

PATIENT
  Age: 92 Year
  Sex: Female

DRUGS (2)
  1. METHYLPHENIDATE [Suspect]
     Dosage: 10 MG, QD
  2. FLUDROCORTISONE ACETATE [Concomitant]

REACTIONS (2)
  - SYNCOPE [None]
  - DEHYDRATION [None]
